FAERS Safety Report 9400990 (Version 3)
Quarter: 2014Q3

REPORT INFORMATION
  Report Type: Spontaneous
  Country: US (occurrence: US)
  Receive Date: 20130715
  Receipt Date: 20140807
  Transmission Date: 20150326
  Serious: Yes (Death, Hospitalization)
  Sender: FDA-Public Use
  Company Number: US-GLAXOSMITHKLINE-A1033163A

PATIENT
  Sex: Female

DRUGS (1)
  1. AVANDIA [Suspect]
     Active Substance: ROSIGLITAZONE MALEATE
     Indication: DIABETES MELLITUS
     Dosage: 4MG UNKNOWN
     Route: 048
     Dates: start: 200410, end: 200703

REACTIONS (7)
  - Myocardial infarction [Fatal]
  - Acute coronary syndrome [Fatal]
  - Pulmonary oedema [Unknown]
  - Cardiac failure congestive [Fatal]
  - Pleural effusion [Unknown]
  - Ventricular fibrillation [Unknown]
  - Coronary artery disease [Fatal]
